FAERS Safety Report 24763761 (Version 1)
Quarter: 2024Q4

REPORT INFORMATION
  Report Type: Spontaneous
  Country: US (occurrence: US)
  Receive Date: 20241223
  Receipt Date: 20241223
  Transmission Date: 20250114
  Serious: No
  Sender: TEVA
  Company Number: US-TEVA-VS-3273754

PATIENT

DRUGS (1)
  1. AMPHETAMINE ASPARTATE\DEXTROAMPHETAMINE SACCHARATE [Suspect]
     Active Substance: AMPHETAMINE ASPARTATE\DEXTROAMPHETAMINE SACCHARATE
     Indication: Product used for unknown indication
     Dosage: CAPSULE, EXTENDED RELEASE
     Route: 065

REACTIONS (2)
  - Migraine [Recovered/Resolved]
  - Product substitution issue [Unknown]
